FAERS Safety Report 5740050-6 (Version None)
Quarter: 2008Q2

REPORT INFORMATION
  Report Type: 
  Country: None (occurrence: None)
  Receive Date: 20080516
  Receipt Date: 20080502
  Transmission Date: 20081010
  Serious: Yes (Hospitalization)
  Sender: FDA-Public Use
  Company Number: IT-BAYER-200817792GPV

PATIENT
  Age: 65 Year
  Sex: Male

DRUGS (4)
  1. ASPIRIN [Suspect]
     Indication: ANTICOAGULANT THERAPY
     Dosage: TOTAL DAILY DOSE: 100 MG  UNIT DOSE: 100 MG
     Route: 048
     Dates: start: 20040401, end: 20080423
  2. OKI (KETOPROFEN) [Suspect]
     Indication: NECK PAIN
     Dosage: UNIT DOSE: 80 MG
     Route: 048
     Dates: start: 20080422, end: 20080422
  3. LORTAAN (LOSARTAN) [Concomitant]
     Indication: HYPERTENSION
     Dosage: TOTAL DAILY DOSE: 50 MG  UNIT DOSE: 50 MG
     Route: 048
     Dates: start: 20040401, end: 20080423
  4. AUGMENTIN '200' [Concomitant]
     Indication: PYREXIA
     Dosage: TOTAL DAILY DOSE: 2 G  UNIT DOSE: 1 G
     Route: 048
     Dates: start: 20080414, end: 20080420

REACTIONS (2)
  - DUODENAL ULCER [None]
  - MELAENA [None]
